FAERS Safety Report 4392560-4 (Version None)
Quarter: 2004Q3

REPORT INFORMATION
  Report Type: 
  Country: None (occurrence: None)
  Receive Date: 20040701
  Receipt Date: 20040622
  Transmission Date: 20050211
  Serious: Yes (Hospitalization, Other)
  Sender: FDA-Public Use
  Company Number: HQWYE547622JUN04

PATIENT
  Age: 55 Year
  Sex: Female

DRUGS (4)
  1. EUPANTOL (PANTOPRAZOLE, TABLET, DELAYED RELEASE) [Suspect]
     Indication: ABDOMINAL PAIN UPPER
     Dosage: 40 MG 1X PER 1 DAY ORAL
     Route: 048
     Dates: start: 20040503, end: 20040507
  2. LEVOTHYROXINE SODIUM [Concomitant]
  3. DUPHASTON [Concomitant]
  4. ESTRADERM [Concomitant]

REACTIONS (1)
  - THROMBOCYTOPENIC PURPURA [None]
